FAERS Safety Report 7659462-9 (Version None)
Quarter: 2011Q3

REPORT INFORMATION
  Report Type: 
  Country: None (occurrence: None)
  Receive Date: 20110805
  Receipt Date: 20110727
  Transmission Date: 20111222
  Serious: Yes (Other)
  Sender: FDA-Public Use
  Company Number: IL-JNJFOC-20110712125

PATIENT
  Age: 54 Year
  Sex: Female

DRUGS (2)
  1. REMICADE [Suspect]
     Indication: RHEUMATOID ARTHRITIS
     Route: 042
     Dates: start: 20110727
  2. REMICADE [Suspect]
     Dosage: TREATED WITH REMICADE FOR MANY YEARS
     Route: 042

REACTIONS (3)
  - SUFFOCATION FEELING [None]
  - INFUSION RELATED REACTION [None]
  - FLUSHING [None]
